FAERS Safety Report 16667824 (Version 1)
Quarter: 2019Q3

REPORT INFORMATION
  Report Type: Spontaneous
  Country: IN (occurrence: IN)
  Receive Date: 20190805
  Receipt Date: 20190805
  Transmission Date: 20191004
  Serious: Yes (Death, Hospitalization, Other)
  Sender: FDA-Public Use
  Company Number: IN-MYLANLABS-2019M1072226

PATIENT
  Age: 62 Year
  Sex: Male

DRUGS (9)
  1. GENTAMICIN. [Concomitant]
     Active Substance: GENTAMICIN
     Indication: EVIDENCE BASED TREATMENT
     Route: 042
  2. AMPHOTERICIN B. [Suspect]
     Active Substance: AMPHOTERICIN B
     Indication: MUCORMYCOSIS
     Route: 065
  3. AMOXICILLIN/CLAVULANIC ACID [Concomitant]
     Active Substance: AMOXICILLIN\CLAVULANIC ACID
     Indication: EVIDENCE BASED TREATMENT
     Route: 042
  4. METRONIDAZOLE. [Concomitant]
     Active Substance: METRONIDAZOLE
     Indication: EVIDENCE BASED TREATMENT
     Route: 042
  5. DEXAMETHASONE. [Suspect]
     Active Substance: DEXAMETHASONE
     Indication: PEMPHIGUS
     Dosage: GIVEN AS PULSE THERAPY OVER 3 DAYS
     Route: 042
  6. CYCLOPHOSPHAMIDE. [Suspect]
     Active Substance: CYCLOPHOSPHAMIDE
     Indication: PEMPHIGUS
     Dosage: 50 MILLIGRAM, QD
     Route: 048
  7. PREDNISOLONE. [Suspect]
     Active Substance: PREDNISOLONE
     Indication: PEMPHIGUS
     Route: 048
  8. CYCLOPHOSPHAMIDE. [Suspect]
     Active Substance: CYCLOPHOSPHAMIDE
     Indication: PEMPHIGUS
     Dosage: GIVEN AS PULSE THERAPY OVER 3 DAYS
     Route: 042
  9. AMOXICILLIN/CLAVULANIC ACID [Concomitant]
     Active Substance: AMOXICILLIN\CLAVULANIC ACID
     Indication: EVIDENCE BASED TREATMENT
     Dosage: THRICE DAILY
     Route: 048

REACTIONS (10)
  - Acinetobacter infection [Fatal]
  - Staphylococcal infection [Fatal]
  - Mucormycosis [Fatal]
  - Septic shock [Fatal]
  - Haemoglobin decreased [Fatal]
  - Thrombocytopenia [Fatal]
  - Leukopenia [Fatal]
  - Cardiac arrest [Fatal]
  - Drug ineffective [Fatal]
  - Disseminated intravascular coagulation [Fatal]
